FAERS Safety Report 11993486 (Version 6)
Quarter: 2016Q2

REPORT INFORMATION
  Report Type: Report from Study
  Country: GB (occurrence: GB)
  Receive Date: 20160203
  Receipt Date: 20160617
  Transmission Date: 20160815
  Serious: Yes (Hospitalization)
  Sender: FDA-Public Use
  Company Number: GB-ASTRAZENECA-2016SE08772

PATIENT
  Age: 22790 Day
  Sex: Male
  Weight: 70.6 kg

DRUGS (7)
  1. HUMULIN NOS [Concomitant]
     Active Substance: INSULIN HUMAN
     Indication: DIABETES MELLITUS
     Dosage: 18 UNITS AM AND 8 UNITS PM
     Route: 042
  2. CREON [Concomitant]
     Active Substance: PANCRELIPASE AMYLASE\PANCRELIPASE LIPASE\PANCRELIPASE PROTEASE
     Indication: PANCREATIC INSUFFICIENCY
     Dosage: 40000 UNITS DAILY
     Route: 048
     Dates: start: 2015
  3. OLAPARIB [Suspect]
     Active Substance: OLAPARIB
     Indication: PANCREATIC CARCINOMA
     Route: 048
     Dates: start: 20150824
  4. CAPECITABINE. [Suspect]
     Active Substance: CAPECITABINE
     Indication: PANCREATIC CARCINOMA
     Route: 048
     Dates: start: 20150827
  5. PRAVASTATIN [Concomitant]
     Active Substance: PRAVASTATIN\PRAVASTATIN SODIUM
     Indication: PERIPHERAL VASCULAR DISORDER
     Route: 048
     Dates: start: 2008
  6. RADIOTHERAPY [Suspect]
     Active Substance: RADIATION THERAPY
     Indication: PANCREATIC CARCINOMA
     Dosage: FRACTION-28 DOSE-50.4 GY
     Route: 065
     Dates: start: 20150827
  7. MORPHINE SULPHATE [Concomitant]
     Active Substance: MORPHINE SULFATE
     Indication: ABDOMINAL PAIN UPPER
     Route: 048
     Dates: start: 2014

REACTIONS (1)
  - Duodenal stenosis [Recovered/Resolved]

NARRATIVE: CASE EVENT DATE: 20151119
